FAERS Safety Report 9616874 (Version 1)
Quarter: 2013Q4

REPORT INFORMATION
  Report Type: Spontaneous
  Country: MX (occurrence: MX)
  Receive Date: 20131011
  Receipt Date: 20131011
  Transmission Date: 20140711
  Serious: Yes (Other)
  Sender: FDA-Public Use
  Company Number: PHHY2013MX113977

PATIENT
  Age: 11 Year
  Sex: Male

DRUGS (3)
  1. RITALIN LA [Suspect]
     Indication: ATTENTION DEFICIT/HYPERACTIVITY DISORDER
     Dosage: 1 DF (30 MG), DAILY
     Route: 048
     Dates: start: 201205
  2. CONCERTA [Suspect]
     Indication: ATTENTION DEFICIT/HYPERACTIVITY DISORDER
     Dosage: 27 MG, UNK
     Dates: start: 20130917, end: 20131001
  3. LAMICTAL [Concomitant]
     Dosage: 75 MG AT MORNING, 75 MG AT NIGHT
     Dates: start: 2009

REACTIONS (4)
  - Epilepsy [Unknown]
  - Crying [Recovered/Resolved]
  - Irritability [Recovered/Resolved]
  - Insomnia [Recovered/Resolved]
